FAERS Safety Report 17415377 (Version 1)
Quarter: 2020Q1

REPORT INFORMATION
  Report Type: Spontaneous
  Country: US (occurrence: US)
  Receive Date: 20200213
  Receipt Date: 20200213
  Transmission Date: 20200409
  Serious: Yes (Hospitalization)
  Sender: FDA-Public Use
  Company Number: US-ALLERGAN-2007192US

PATIENT
  Sex: Female

DRUGS (1)
  1. DEOXYCHOLIC ACID UNK [Suspect]
     Active Substance: DEOXYCHOLIC ACID
     Indication: FAT TISSUE INCREASED
     Dosage: UNK UNK, SINGLE
     Route: 058

REACTIONS (2)
  - Injection site abscess [Recovering/Resolving]
  - Cellulitis [Recovering/Resolving]
